FAERS Safety Report 4800051-9 (Version None)
Quarter: 2005Q4

REPORT INFORMATION
  Report Type: 
  Country: None (occurrence: None)
  Receive Date: 20051017
  Receipt Date: 20051005
  Transmission Date: 20060501
  Serious: Yes (Hospitalization)
  Sender: FDA-Public Use
  Company Number: US-JNJFOC-20050804622

PATIENT
  Sex: Female
  Weight: 53.98 kg

DRUGS (11)
  1. REMICADE [Suspect]
     Indication: CROHN'S DISEASE
     Dosage: PATIENT ON REMICADE MORE THAN A YEAR.
     Route: 042
  2. GADOLINIUM [Suspect]
     Indication: SCAN WITH CONTRAST
     Route: 042
  3. ASACOL [Concomitant]
     Indication: CROHN'S DISEASE
  4. SYNTHROID [Concomitant]
  5. TOPROL-XL [Concomitant]
  6. CANASA [Concomitant]
  7. TYLENOL W/ CODEINE NO. 4 [Concomitant]
     Dosage: AS NECESSARY
  8. PRAMOZONE 2.5% [Concomitant]
  9. PRAMOZONE 2.5% [Concomitant]
  10. ACTONEL [Concomitant]
     Indication: OSTEOPOROSIS
  11. PREDNISONE [Concomitant]

REACTIONS (2)
  - ANTINUCLEAR ANTIBODY POSITIVE [None]
  - EMBOLISM [None]
